FAERS Safety Report 15293791 (Version 4)
Quarter: 2019Q2

REPORT INFORMATION
  Report Type: Report from Study
  Country: US (occurrence: US)
  Receive Date: 20180820
  Receipt Date: 20190524
  Transmission Date: 20190711
  Serious: Yes (Other)
  Sender: FDA-Public Use
  Company Number: US-ROCHE-2169702

PATIENT
  Sex: Female

DRUGS (5)
  1. OCREVUS [Suspect]
     Active Substance: OCRELIZUMAB
     Route: 042
     Dates: start: 20180404, end: 20190315
  2. NEOMYCIN SULFATE;POLYMYXIN B SULFATE [Concomitant]
     Dosage: 40MG-200000 UNITS/ML
     Route: 061
  3. OCREVUS [Suspect]
     Active Substance: OCRELIZUMAB
     Route: 042
     Dates: start: 201804
  4. OCREVUS [Suspect]
     Active Substance: OCRELIZUMAB
     Indication: PRIMARY PROGRESSIVE MULTIPLE SCLEROSIS
     Route: 042
     Dates: start: 201802
  5. BACLOFEN. [Concomitant]
     Active Substance: BACLOFEN
     Dosage: 1-2 TID-QID
     Route: 048
     Dates: start: 20140916

REACTIONS (1)
  - Urinary tract infection [Recovered/Resolved]
